FAERS Safety Report 23350747 (Version 2)
Quarter: 2024Q1

REPORT INFORMATION
  Report Type: Spontaneous
  Country: CN (occurrence: CN)
  Receive Date: 20231229
  Receipt Date: 20240113
  Transmission Date: 20240410
  Serious: Yes (Life-Threatening, Other)
  Sender: FDA-Public Use
  Company Number: CN-JNJFOC-20231255748

PATIENT

DRUGS (1)
  1. IBRUTINIB [Suspect]
     Active Substance: IBRUTINIB
     Indication: Diffuse large B-cell lymphoma
     Route: 048

REACTIONS (20)
  - Granulocytopenia [Unknown]
  - Anal incontinence [Unknown]
  - Neurotoxicity [Unknown]
  - Cardiotoxicity [Unknown]
  - Muscular weakness [Unknown]
  - Dysarthria [Unknown]
  - White blood cell count decreased [Unknown]
  - Infection [Unknown]
  - Pneumonia [Unknown]
  - Haemoglobin decreased [Unknown]
  - Hypokalaemia [Unknown]
  - Hepatotoxicity [Unknown]
  - Arthralgia [Unknown]
  - Rash [Unknown]
  - Gastrointestinal toxicity [Unknown]
  - Renal failure [Unknown]
  - Product use in unapproved indication [Unknown]
  - Vision blurred [Unknown]
  - Urinary incontinence [Unknown]
  - Platelet count decreased [Unknown]
